FAERS Safety Report 13962818 (Version 1)
Quarter: 2017Q3

REPORT INFORMATION
  Report Type: Spontaneous
  Country: US (occurrence: US)
  Receive Date: 20170912
  Receipt Date: 20170912
  Transmission Date: 20171128
  Serious: Yes (Other)
  Sender: FDA-Public Use
  Company Number: None

PATIENT

DRUGS (1)
  1. ADRENALIN [Suspect]
     Active Substance: EPINEPHRINE

REACTIONS (2)
  - Product use issue [None]
  - Product label confusion [None]
